FAERS Safety Report 15272521 (Version 1)
Quarter: 2018Q3

REPORT INFORMATION
  Report Type: Spontaneous
  Country: US (occurrence: US)
  Receive Date: 20180727
  Receipt Date: 20180727
  Transmission Date: 20181010
  Serious: No
  Sender: FDA-Public Use
  Company Number: None

PATIENT
  Age: 74 Year
  Sex: Female
  Weight: 77.4 kg

DRUGS (2)
  1. IMATINIB [Suspect]
     Active Substance: IMATINIB
     Indication: NEOPLASM MALIGNANT
     Route: 048
     Dates: start: 20180613
  2. IMATINIB [Concomitant]
     Active Substance: IMATINIB
     Dates: start: 20160923

REACTIONS (5)
  - Fatigue [None]
  - Oedema [None]
  - Pruritus [None]
  - Alopecia [None]
  - Mood swings [None]

NARRATIVE: CASE EVENT DATE: 20180727
